FAERS Safety Report 9064177 (Version 2)
Quarter: 2013Q1

REPORT INFORMATION
  Report Type: Spontaneous
  Country: JP (occurrence: JP)
  Receive Date: 20130125
  Receipt Date: 20130131
  Transmission Date: 20140127
  Serious: Yes (Death)
  Sender: FDA-Public Use
  Company Number: JP-B.I. PHARMACEUTICALS,INC./RIDGEFIELD-2012-BI-04360NB

PATIENT
  Sex: 0

DRUGS (1)
  1. MICARDIS [Suspect]
     Indication: HYPERTENSION
     Dosage: 40 MG
     Route: 048
     Dates: end: 201212

REACTIONS (4)
  - Marasmus [Fatal]
  - Sepsis [Fatal]
  - Pneumonia [Fatal]
  - Hypoglycaemia [Recovered/Resolved]
